FAERS Safety Report 19830237 (Version 1)
Quarter: 2021Q3

REPORT INFORMATION
  Report Type: Spontaneous
  Country: US (occurrence: US)
  Receive Date: 20210915
  Receipt Date: 20210915
  Transmission Date: 20211014
  Serious: No
  Sender: FDA-Public Use
  Company Number: None

PATIENT
  Sex: Female
  Weight: 57.6 kg

DRUGS (4)
  1. LEVOTHYROXINE AKA SYNTHROID [Suspect]
     Active Substance: LEVOTHYROXINE
     Indication: HYPOTHYROIDISM
     Dosage: ?          QUANTITY:1 TABLET(S);?
     Route: 048
  2. VITAMIN D3 125 MCG WITH 200 MG FLAXSEED OIL [Concomitant]
  3. CALCIUM SPUULEMENT WITH D3 10 MCG AND CALCIUM CARBONATE 600 MG [Concomitant]
  4. TRADE JOE^S WOMEN^S FORMULA PROBIOTIC [Concomitant]

REACTIONS (2)
  - Muscle spasms [None]
  - Headache [None]
